FAERS Safety Report 5491675-7 (Version None)
Quarter: 2007Q4

REPORT INFORMATION
  Report Type: 
  Country: None (occurrence: None)
  Receive Date: 20071022
  Receipt Date: 20071012
  Transmission Date: 20080405
  Serious: Yes (Other)
  Sender: FDA-Public Use
  Company Number: US-JNJFOC-20071002062

PATIENT
  Age: 59 Year
  Sex: Female
  Weight: 79.83 kg

DRUGS (4)
  1. TOPAMAX [Suspect]
     Indication: EPILEPSY
     Route: 048
  2. UNSPECIFIED THERAPY [Concomitant]
     Indication: THYROID DISORDER
  3. UNSPECIFIED THERAPY [Concomitant]
     Indication: BLOOD PRESSURE ABNORMAL
  4. UNSPECIFIED THERAPY [Concomitant]
     Indication: BLOOD CHOLESTEROL ABNORMAL

REACTIONS (5)
  - CONTUSION [None]
  - DYSPNOEA [None]
  - HEADACHE [None]
  - LOSS OF CONSCIOUSNESS [None]
  - PANIC ATTACK [None]
